FAERS Safety Report 7272534-6 (Version None)
Quarter: 2011Q1

REPORT INFORMATION
  Report Type: 
  Country: None (occurrence: None)
  Receive Date: 20110131
  Receipt Date: 20110131
  Transmission Date: 20110831
  Serious: Yes (Death, Life-Threatening, Hospitalization)
  Sender: FDA-Public Use
  Company Number: None

PATIENT
  Age: 59 Year
  Sex: Male
  Weight: 75 kg

DRUGS (1)
  1. COUMADIN [Suspect]
     Dosage: 5 MG EVERY DAY PO
     Route: 048
     Dates: start: 19940816, end: 20110116

REACTIONS (8)
  - MENTAL STATUS CHANGES [None]
  - BRADYCARDIA [None]
  - INTERNATIONAL NORMALISED RATIO INCREASED [None]
  - BRAIN HERNIATION [None]
  - INTRAVENTRICULAR HAEMORRHAGE [None]
  - TRANSIENT ISCHAEMIC ATTACK [None]
  - CEREBRAL HAEMATOMA [None]
  - HYPERTENSION [None]
